FAERS Safety Report 15192336 (Version 1)
Quarter: 2018Q3

REPORT INFORMATION
  Report Type: Spontaneous
  Country: US (occurrence: US)
  Receive Date: 20180724
  Receipt Date: 20180724
  Transmission Date: 20181010
  Serious: No
  Sender: FDA-Public Use
  Company Number: US-BAUSCH-BL-2017-017072

PATIENT
  Age: 67 Year
  Sex: Male

DRUGS (2)
  1. ISTALOL [Suspect]
     Active Substance: TIMOLOL MALEATE
     Indication: GLAUCOMA
     Dosage: ONE DROP IN EACH EYE IN THE MORNING
     Route: 047
     Dates: start: 2015
  2. ISTALOL [Suspect]
     Active Substance: TIMOLOL MALEATE
     Dosage: ONE DROP IN EACH EYE IN THE MORNING
     Route: 047
     Dates: start: 20170428

REACTIONS (1)
  - Eye pain [Recovered/Resolved]

NARRATIVE: CASE EVENT DATE: 2017
